FAERS Safety Report 23581153 (Version 1)
Quarter: 2024Q1

REPORT INFORMATION
  Report Type: Spontaneous
  Country: RU (occurrence: RU)
  Receive Date: 20240229
  Receipt Date: 20240229
  Transmission Date: 20240409
  Serious: Yes (Death, Other)
  Sender: FDA-Public Use
  Company Number: RU-002147023-NVSC2024RU007762

PATIENT

DRUGS (4)
  1. RUXOLITINIB [Suspect]
     Active Substance: RUXOLITINIB
     Indication: Polycythaemia vera
     Dosage: 15 MG, BID
     Route: 048
     Dates: start: 20191201
  2. PREDNISOLONE [Concomitant]
     Active Substance: PREDNISOLONE
     Indication: Product used for unknown indication
     Dosage: 5 MG, QD
     Route: 048
     Dates: start: 20210301
  3. OMEPRAZOLE [Concomitant]
     Active Substance: OMEPRAZOLE
     Indication: Product used for unknown indication
     Dosage: 20 MG, BID
     Route: 048
     Dates: start: 20210301
  4. SORBIFER DURULES [ASCORBIC ACID;FERROUS SULFATE] [Concomitant]
     Indication: Product used for unknown indication
     Dosage: 100 MG, BID
     Route: 048
     Dates: start: 20211124

REACTIONS (5)
  - Anaemia [Unknown]
  - Polycythaemia vera [Fatal]
  - Malignant neoplasm progression [Fatal]
  - Thrombocytopenia [Unknown]
  - Acute leukaemia [Unknown]

NARRATIVE: CASE EVENT DATE: 20211123
